FAERS Safety Report 20303443 (Version 1)
Quarter: 2022Q1

REPORT INFORMATION
  Report Type: Spontaneous
  Country: JP (occurrence: JP)
  Receive Date: 20220106
  Receipt Date: 20220106
  Transmission Date: 20220424
  Serious: Yes (Hospitalization, Other)
  Sender: FDA-Public Use
  Company Number: JP-BRISTOL-MYERS SQUIBB COMPANY-BMS-2021-095969

PATIENT
  Age: 58 Year
  Sex: Male

DRUGS (2)
  1. YERVOY [Suspect]
     Active Substance: IPILIMUMAB
     Indication: Malignant melanoma
     Dosage: 3 MILLIGRAM/KILOGRAM
     Route: 041
     Dates: start: 20160412, end: 20160506
  2. OPDIVO [Suspect]
     Active Substance: NIVOLUMAB
     Indication: Malignant melanoma
     Dosage: 1 MILLIGRAM/KILOGRAM
     Route: 041
     Dates: start: 20160412, end: 20160506

REACTIONS (3)
  - Drug eruption [Recovered/Resolved]
  - Drug-induced liver injury [Recovered/Resolved]
  - Malignant neoplasm progression [Unknown]

NARRATIVE: CASE EVENT DATE: 20160519
